FAERS Safety Report 5874537-2 (Version None)
Quarter: 2008Q3

REPORT INFORMATION
  Report Type: 
  Country: None (occurrence: None)
  Receive Date: 20080909
  Receipt Date: 20080901
  Transmission Date: 20090109
  Serious: Yes (Death)
  Sender: FDA-Public Use
  Company Number: PHHY2008JP13762

PATIENT
  Age: 71 Year
  Sex: Male

DRUGS (58)
  1. ZOLEDRONIC ACID [Suspect]
     Indication: URETERIC CANCER
     Dosage: 4 MG, QD
     Route: 042
     Dates: start: 20080305, end: 20080305
  2. KYTRIL [Concomitant]
     Dosage: 3 MG
     Route: 042
     Dates: start: 20080303, end: 20080324
  3. DECADRON SRC [Concomitant]
     Dosage: 8MG
     Route: 042
     Dates: start: 20080303, end: 20080324
  4. METHOTREXATE [Concomitant]
     Dosage: 40MG
     Route: 042
     Dates: start: 20080324, end: 20080324
  5. EXAL 1 [Concomitant]
     Dosage: 4.0MG
     Route: 042
     Dates: start: 20080324, end: 20080324
  6. NEU-UP [Concomitant]
     Dosage: 100 UG
     Route: 042
     Dates: start: 20080314, end: 20080316
  7. OXYCONTIN [Concomitant]
     Dosage: 40 MG
     Route: 048
     Dates: start: 20080129
  8. OXYCONTIN [Concomitant]
     Dosage: 60 MG
     Route: 048
  9. OXYCONTIN [Concomitant]
     Dosage: 80 MG
     Route: 048
  10. OXYCONTIN [Concomitant]
     Dosage: 120 MG
     Route: 048
  11. OXYCONTIN [Concomitant]
     Dosage: 180 MG
     Route: 048
  12. OXYCONTIN [Concomitant]
     Dosage: 240 MG
     Route: 048
  13. OXYCONTIN [Concomitant]
     Dosage: 180 MG
     Route: 048
  14. OXYCONTIN [Concomitant]
     Dosage: 120 MG
     Route: 048
  15. OXYCONTIN [Concomitant]
     Dosage: 60 MG
     Route: 048
  16. OXINORM [Concomitant]
     Dosage: 5 MG
     Route: 048
     Dates: start: 20080306
  17. OXINORM [Concomitant]
     Dosage: 20MG
     Route: 048
  18. OXINORM [Concomitant]
     Dosage: 30 MG
     Route: 048
  19. OXINORM [Concomitant]
     Dosage: 40 MG
     Route: 048
  20. OXINORM [Concomitant]
     Dosage: 50 MG
     Route: 048
     Dates: end: 20080603
  21. DUROTEP JANSSEN [Concomitant]
     Dosage: 7.5 MG
     Route: 061
     Dates: start: 20080506
  22. DUROTEP JANSSEN [Concomitant]
     Dosage: 15  MG
     Route: 061
  23. DUROTEP JANSSEN [Concomitant]
     Dosage: 17.5MG
     Route: 061
  24. DUROTEP JANSSEN [Concomitant]
     Dosage: 22.5MG
     Route: 061
  25. NOVAMIN [Concomitant]
     Dosage: 15MG
     Route: 048
     Dates: start: 20080112
  26. GASMOTIN [Concomitant]
     Dosage: 15 MG
     Route: 048
     Dates: start: 20080114
  27. MAGLAX [Concomitant]
     Dosage: 750MG
     Route: 048
     Dates: start: 20080114
  28. PURSENNID [Concomitant]
     Dosage: 24 MG
     Route: 048
     Dates: start: 20080128
  29. LECICARBON [Concomitant]
     Dosage: 1 DF
     Route: 051
     Dates: start: 20080426
  30. MOBIC [Concomitant]
     Dosage: 10MG
     Route: 048
     Dates: start: 20080317
  31. RIVOTRIL [Concomitant]
     Dosage: 0.5MG
     Route: 048
     Dates: start: 20080508
  32. RIVOTRIL [Concomitant]
     Dosage: 1 MG
     Route: 048
  33. LORAMET [Concomitant]
     Dosage: 1 MG
     Route: 048
     Dates: start: 20080527
  34. LORAMET [Concomitant]
     Dosage: 1 MG
     Route: 048
     Dates: end: 20080603
  35. LACTEC [Concomitant]
     Dosage: 2000 ML
     Route: 042
     Dates: start: 20080303
  36. LACTEC [Concomitant]
     Dosage: 1000ML
     Route: 042
  37. LACTEC [Concomitant]
     Dosage: 1000ML
     Route: 042
  38. LACTEC [Concomitant]
     Dosage: 2000ML
     Route: 042
  39. LACTEC [Concomitant]
     Dosage: 500ML
     Route: 042
  40. LACTEC [Concomitant]
     Dosage: 2000ML
     Route: 042
     Dates: end: 20080324
  41. LACTEC D [Concomitant]
     Dosage: 1000ML
     Route: 042
     Dates: start: 20080510, end: 20080531
  42. FLUID/ELECTROLYTE REPLACEMENT THERAPY [Concomitant]
     Dosage: 1000ML
     Route: 042
     Dates: start: 20080318, end: 20080319
  43. TATHION [Concomitant]
     Dosage: 200 MG
     Route: 042
     Dates: start: 20080511
  44. TATHION [Concomitant]
     Dosage: 200 MG
     Route: 042
     Dates: end: 20080530
  45. PANTOL [Concomitant]
     Dosage: 1000MG
     Route: 042
     Dates: start: 20080512
  46. PANTOL [Concomitant]
     Dosage: 500 MG
     Route: 042
     Dates: end: 20080530
  47. ROPION [Concomitant]
     Dosage: 50 MG
     Route: 042
     Dates: start: 20080608
  48. FENTANYL [Concomitant]
     Dosage: 0.5 MG
     Route: 042
  49. FENTANYL [Concomitant]
     Dosage: 0.5 MG
     Route: 042
  50. FENTANYL [Concomitant]
     Dosage: 0.5 MG
     Route: 042
     Dates: end: 20080611
  51. SOLDEM 3A [Concomitant]
     Dosage: 1000ML
     Route: 042
     Dates: start: 20080511
  52. METABOLIN [Concomitant]
     Dosage: 10ML
     Route: 042
     Dates: start: 20080511
  53. FLADD [Concomitant]
     Dosage: 10MG
     Route: 042
     Dates: start: 20080511
  54. ASCORBIC ACID [Concomitant]
     Dosage: 500MG
     Route: 042
     Dates: start: 20080511
  55. LASIX [Concomitant]
     Dosage: 20 MG
     Route: 048
     Dates: start: 20080523
  56. LASIX [Concomitant]
     Dosage: 20 MG
     Route: 048
     Dates: end: 20080525
  57. LASIX [Concomitant]
     Dosage: 40 MG
     Route: 042
     Dates: start: 20080526
  58. LASIX [Concomitant]
     Dosage: 80 MG
     Route: 042

REACTIONS (2)
  - BLOOD UREA ABNORMAL [None]
  - MALIGNANT NEOPLASM PROGRESSION [None]
